FAERS Safety Report 6353491-3 (Version None)
Quarter: 2009Q3

REPORT INFORMATION
  Report Type: 
  Country: None (occurrence: None)
  Receive Date: 20090912
  Receipt Date: 20090622
  Transmission Date: 20100115
  Serious: No
  Sender: FDA-Public Use
  Company Number: US-ABBOTT-08P-163-0470865-00

PATIENT
  Sex: Female
  Weight: 59.928 kg

DRUGS (4)
  1. HUMIRA [Suspect]
     Indication: PSORIATIC ARTHROPATHY
     Route: 058
     Dates: start: 20060801
  2. CETIRIZINE HYDROCHLORIDE [Concomitant]
     Indication: SEASONAL ALLERGY
     Route: 048
  3. ARTHROTEC [Concomitant]
     Indication: ANTIINFLAMMATORY THERAPY
     Route: 048
  4. VITAMINS [Concomitant]
     Indication: VITAMIN SUPPLEMENTATION
     Route: 048

REACTIONS (3)
  - INCORRECT DOSE ADMINISTERED [None]
  - PSORIATIC ARTHROPATHY [None]
  - WRONG TECHNIQUE IN DRUG USAGE PROCESS [None]
